FAERS Safety Report 8918290 (Version 3)
Quarter: 2013Q1

REPORT INFORMATION
  Report Type: Report from Study
  Country: JP (occurrence: JP)
  Receive Date: 20121120
  Receipt Date: 20130118
  Transmission Date: 20140127
  Serious: Yes (Other)
  Sender: FDA-Public Use
  Company Number: JP-OTSUKA-JP-2012-16813

PATIENT
  Age: 85 Year
  Sex: Male
  Weight: 52 kg

DRUGS (9)
  1. SAMSCA [Suspect]
     Indication: FLUID RETENTION
     Dosage: 7.5 MG MILLIGRAM(S), QAM
     Route: 048
     Dates: start: 20121002, end: 20121009
  2. SAMSCA [Suspect]
     Dosage: 7.5 MG MILLIGRAM(S), QAM
     Route: 048
     Dates: start: 20121012, end: 20121012
  3. SAMSCA [Suspect]
     Dosage: 15 MG MILLIGRAM(S), QAM
     Route: 048
     Dates: start: 20121014, end: 20121014
  4. ANCARON [Concomitant]
     Indication: CARDIAC FAILURE
     Dosage: 100 MG MILLIGRAM(S), DAILY DOSE
     Route: 048
  5. THYRADIN [Concomitant]
     Dosage: 125 MCG, DAILY DOSE
     Route: 048
  6. DIART [Concomitant]
     Indication: CARDIAC FAILURE
     Dosage: 60 MG MILLIGRAM(S), DAILY DOSE
     Route: 048
  7. SELARA [Concomitant]
     Dosage: 25 MG MILLIGRAM(S), DAILY DOSE
     Route: 048
  8. DIOVAN [Concomitant]
     Dosage: 40 MG MILLIGRAM(S), DAILY DOSE
     Route: 048
  9. MAINTATE [Concomitant]
     Dosage: 1.25 MG MILLIGRAM(S), DAILY DOSE
     Route: 048

REACTIONS (4)
  - Renal impairment [Recovered/Resolved]
  - Drug effect incomplete [Unknown]
  - Blood urea increased [None]
  - Blood creatinine increased [None]
